FAERS Safety Report 22249536 (Version 1)
Quarter: 2023Q2

REPORT INFORMATION
  Report Type: Spontaneous
  Country: US (occurrence: None)
  Receive Date: 20230424
  Receipt Date: 20230424
  Transmission Date: 20230722
  Serious: Yes (Other)
  Sender: FDA-Public Use
  Company Number: None

PATIENT
  Age: 43 Year
  Sex: Female
  Weight: 69.75 kg

DRUGS (2)
  1. DOXYCYCLINE [Suspect]
     Active Substance: DOXYCYCLINE
     Indication: Infection
     Dosage: OTHER QUANTITY : 1 CAPSULE(S);?FREQUENCY : TWICE A DAY;?
     Route: 048
     Dates: start: 20230331, end: 20230401
  2. PREDNISONE [Concomitant]
     Active Substance: PREDNISONE

REACTIONS (10)
  - Urticaria [None]
  - Blister [None]
  - Pruritus [None]
  - Burning sensation [None]
  - Influenza like illness [None]
  - Arthralgia [None]
  - Generalised oedema [None]
  - Pain [None]
  - Scar [None]
  - Pyrexia [None]

NARRATIVE: CASE EVENT DATE: 20230401
